FAERS Safety Report 6659736-4 (Version None)
Quarter: 2010Q1

REPORT INFORMATION
  Report Type: 
  Country: None (occurrence: None)
  Receive Date: 20100325
  Receipt Date: 20100312
  Transmission Date: 20100710
  Serious: Yes (Other)
  Sender: FDA-Public Use
  Company Number: 004540

PATIENT
  Sex: Male

DRUGS (6)
  1. ISOKET (ISOKET RETARD 60 MG) [Suspect]
     Dosage: 60 MG BID ORAL, 60 MG QD, 1 X 60 MG IN THE MORNING ORAL/1 YEAR UNTIL
     Route: 048
     Dates: end: 20090801
  2. ISOKET (ISOKET RETARD 60 MG) [Suspect]
     Dosage: 60 MG BID ORAL, 60 MG QD, 1 X 60 MG IN THE MORNING ORAL/1 YEAR UNTIL
     Route: 048
     Dates: start: 20090801
  3. PANTOPRAZOLE [Concomitant]
  4. LEVOTHYROXINE SODIUM [Concomitant]
  5. NORVASC [Concomitant]
  6. SIMVASTATIN-MEPHA [Concomitant]

REACTIONS (1)
  - PARALYSIS [None]
